FAERS Safety Report 7332969-X (Version None)
Quarter: 2011Q1

REPORT INFORMATION
  Report Type: 
  Country: None (occurrence: None)
  Receive Date: 20110304
  Receipt Date: 20110221
  Transmission Date: 20110831
  Serious: Yes (Hospitalization)
  Sender: FDA-Public Use
  Company Number: PT-KINGPHARMUSA00001-K201100212

PATIENT
  Age: 56 Year
  Sex: Female

DRUGS (2)
  1. PENICILLIN G PROCAINE [Suspect]
     Dosage: 24 MILLION UNIT, QD
     Route: 030
  2. GENTAMICIN [Suspect]
     Dosage: 160 MG, QD

REACTIONS (5)
  - RASH MACULO-PAPULAR [None]
  - AGRANULOCYTOSIS [None]
  - NEUTROPENIA [None]
  - WHITE BLOOD CELL COUNT DECREASED [None]
  - PYREXIA [None]
